FAERS Safety Report 21312214 (Version 1)
Quarter: 2022Q3

REPORT INFORMATION
  Report Type: Spontaneous
  Country: US (occurrence: None)
  Receive Date: 20220909
  Receipt Date: 20220909
  Transmission Date: 20221027
  Serious: No
  Sender: FDA-Public Use
  Company Number: US-ARIS GLOBAL-202205-0801

PATIENT
  Sex: Male
  Weight: 83 kg

DRUGS (5)
  1. OXERVATE [Suspect]
     Active Substance: CENEGERMIN-BKBJ
     Indication: Neurotrophic keratopathy
     Route: 047
     Dates: start: 20220427, end: 20220621
  2. OXERVATE [Suspect]
     Active Substance: CENEGERMIN-BKBJ
     Route: 047
     Dates: start: 20220706
  3. VITAMINS [Concomitant]
     Active Substance: VITAMINS
  4. ACETAMINOPHEN\HYDROCODONE [Concomitant]
     Active Substance: ACETAMINOPHEN\HYDROCODONE
  5. BONE-UP [Concomitant]

REACTIONS (4)
  - Eye irritation [Unknown]
  - Abnormal sensation in eye [Unknown]
  - Vision blurred [Unknown]
  - Therapy partial responder [Unknown]
